FAERS Safety Report 23341227 (Version 2)
Quarter: 2024Q1

REPORT INFORMATION
  Report Type: Spontaneous
  Country: US (occurrence: US)
  Receive Date: 20231227
  Receipt Date: 20240123
  Transmission Date: 20240410
  Serious: Yes (Other)
  Sender: FDA-Public Use
  Company Number: US-COSETTE-CP2023US000227

PATIENT
  Age: 52 Year
  Sex: Male
  Weight: 190 kg

DRUGS (1)
  1. CLOMIPHENE CITRATE [Suspect]
     Active Substance: CLOMIPHENE CITRATE
     Indication: Hormone therapy
     Route: 048
     Dates: start: 20231101, end: 20231204

REACTIONS (3)
  - Neuropathy peripheral [Unknown]
  - Product use in unapproved indication [Unknown]
  - Walking disability [Unknown]

NARRATIVE: CASE EVENT DATE: 20231101
